FAERS Safety Report 16555895 (Version 5)
Quarter: 2019Q4

REPORT INFORMATION
  Report Type: Report from Study
  Country: US (occurrence: US)
  Receive Date: 20190710
  Receipt Date: 20191230
  Transmission Date: 20200122
  Serious: No
  Sender: FDA-Public Use
  Company Number: US-009507513-1907USA003787

PATIENT
  Age: 18 Year
  Sex: Female
  Weight: 131.97 kg

DRUGS (1)
  1. IMPLANON [Suspect]
     Active Substance: ETONOGESTREL
     Dosage: 1 ROD
     Route: 058
     Dates: start: 20181005, end: 20190705

REACTIONS (4)
  - Device breakage [Recovered/Resolved]
  - Complication of device removal [Recovered/Resolved]
  - Device deployment issue [Recovered/Resolved]
  - No adverse event [Unknown]

NARRATIVE: CASE EVENT DATE: 20181005
